FAERS Safety Report 13486343 (Version 2)
Quarter: 2017Q2

REPORT INFORMATION
  Report Type: Spontaneous
  Country: US (occurrence: US)
  Receive Date: 20170426
  Receipt Date: 20170511
  Transmission Date: 20170830
  Serious: Yes (Other)
  Sender: FDA-Public Use
  Company Number: US-009507513-1704USA009598

PATIENT
  Sex: Male

DRUGS (12)
  1. ECOTRIN [Concomitant]
     Active Substance: ASPIRIN
     Dosage: LOW STRENGTH
  2. XELODA [Concomitant]
     Active Substance: CAPECITABINE
  3. GLUCOTROL [Concomitant]
     Active Substance: GLIPIZIDE
  4. TYLENOL [Concomitant]
     Active Substance: ACETAMINOPHEN
  5. AMIODARONE HYDROCHLORIDE. [Concomitant]
     Active Substance: AMIODARONE HYDROCHLORIDE
  6. METFORMIN HYDROCHLORIDE. [Concomitant]
     Active Substance: METFORMIN HYDROCHLORIDE
  7. CARVEDILOL. [Concomitant]
     Active Substance: CARVEDILOL
  8. LISINOPRIL. [Concomitant]
     Active Substance: LISINOPRIL
  9. SYLATRON [Suspect]
     Active Substance: PEGINTERFERON ALFA-2B
     Indication: MALIGNANT MELANOMA
     Dosage: 100 MICROGRAM, WEEKLY
     Route: 058
     Dates: start: 20151001, end: 20170414
  10. ATORVASTATIN CALCIUM. [Concomitant]
     Active Substance: ATORVASTATIN CALCIUM
  11. KLOR-CON [Concomitant]
     Active Substance: POTASSIUM CHLORIDE
  12. VITAMIN B12 RATIOPHARM [Concomitant]

REACTIONS (3)
  - Treatment noncompliance [Unknown]
  - Product availability issue [Unknown]
  - Malignant melanoma [Unknown]
